FAERS Safety Report 18973417 (Version 1)
Quarter: 2021Q1

REPORT INFORMATION
  Report Type: Spontaneous
  Country: US (occurrence: US)
  Receive Date: 20210304
  Receipt Date: 20210304
  Transmission Date: 20210420
  Serious: No
  Sender: FDA-Public Use
  Company Number: None

PATIENT
  Age: 49 Year

DRUGS (1)
  1. BUPRENORPHINE PATCH [Suspect]
     Active Substance: BUPRENORPHINE
     Dates: start: 20210119, end: 20210122

REACTIONS (2)
  - Application site irritation [None]
  - Skin irritation [None]

NARRATIVE: CASE EVENT DATE: 20210122
